FAERS Safety Report 8028562-6 (Version None)
Quarter: 2012Q1

REPORT INFORMATION
  Report Type: 
  Country: None (occurrence: None)
  Receive Date: 20120106
  Receipt Date: 20110502
  Transmission Date: 20120608
  Serious: Yes (Other)
  Sender: FDA-Public Use
  Company Number: US-MYLANLABS-2011S1006935

PATIENT
  Sex: Female
  Weight: 69.4 kg

DRUGS (4)
  1. AZATHIOPRINE [Suspect]
     Route: 048
  2. AZATHIOPRINE [Suspect]
     Indication: AUTOIMMUNE HEPATITIS
     Route: 048
  3. IMURAN [Suspect]
     Indication: AUTOIMMUNE HEPATITIS
  4. PREDNISONE TAB [Concomitant]
     Dates: start: 19840101

REACTIONS (3)
  - SKIN PAPILLOMA [None]
  - SQUAMOUS CELL CARCINOMA OF SKIN [None]
  - BASAL CELL CARCINOMA [None]
